FAERS Safety Report 8617608-X (Version None)
Quarter: 2012Q3

REPORT INFORMATION
  Report Type: 
  Country: None (occurrence: None)
  Receive Date: 20120824
  Receipt Date: 20111130
  Transmission Date: 20120928
  Serious: No
  Sender: FDA-Public Use
  Company Number: US-ASTRAZENECA-2011SE72876

PATIENT
  Age: 26 Year
  Sex: Female

DRUGS (1)
  1. SYMBICORT [Suspect]
     Indication: ASTHMA
     Dosage: 160/4.5 MCG BID
     Route: 055
     Dates: start: 20111101

REACTIONS (4)
  - SINUS DISORDER [None]
  - LARYNGITIS [None]
  - DYSPHONIA [None]
  - ABSCESS ORAL [None]
